FAERS Safety Report 14480990 (Version 1)
Quarter: 2018Q1

REPORT INFORMATION
  Report Type: Spontaneous
  Country: US (occurrence: US)
  Receive Date: 20180201
  Receipt Date: 20180201
  Transmission Date: 20180509
  Serious: Yes (Disabling)
  Sender: FDA-Public Use
  Company Number: None

PATIENT
  Age: 59 Year
  Sex: Female
  Weight: 94.95 kg

DRUGS (3)
  1. CIPROFLOXICIN [Suspect]
     Active Substance: CIPROFLOXACIN
     Indication: INFECTION
     Dosage: EVERY 12 HOURS ORAL
     Route: 048
  2. SULFA [Concomitant]
     Active Substance: UNSPECIFIED INGREDIENT
  3. MACRODANTIN [Concomitant]
     Active Substance: NITROFURANTOIN

REACTIONS (11)
  - Apparent death [None]
  - Movement disorder [None]
  - Arthralgia [None]
  - Depression [None]
  - Diplopia [None]
  - Feeling abnormal [None]
  - Pain [None]
  - Vision blurred [None]
  - Wound complication [None]
  - Myalgia [None]
  - Malaise [None]

NARRATIVE: CASE EVENT DATE: 20171001
